FAERS Safety Report 10180754 (Version 1)
Quarter: 2014Q2

REPORT INFORMATION
  Report Type: Spontaneous
  Country: US (occurrence: US)
  Receive Date: 20140519
  Receipt Date: 20140519
  Transmission Date: 20141212
  Serious: No
  Sender: FDA-Public Use
  Company Number: US-AMGEN INC.-USASP2014013551

PATIENT
  Age: 61 Year
  Sex: Female

DRUGS (4)
  1. PROLIA [Suspect]
     Indication: OSTEOPOROSIS POSTMENOPAUSAL
     Dosage: UNK
     Route: 065
     Dates: start: 2012
  2. LAMICTAL [Concomitant]
     Route: 065
  3. PAROXETINE [Concomitant]
  4. VITAMIN B-12 [Concomitant]

REACTIONS (3)
  - Vision blurred [Unknown]
  - Eczema eyelids [Unknown]
  - Pruritus [Unknown]
